FAERS Safety Report 18964096 (Version 1)
Quarter: 2021Q1

REPORT INFORMATION
  Report Type: Spontaneous
  Country: US (occurrence: US)
  Receive Date: 20210303
  Receipt Date: 20210303
  Transmission Date: 20210420
  Serious: No
  Sender: FDA-Public Use
  Company Number: US-AMNEAL PHARMACEUTICALS-2020-AMRX-01224

PATIENT
  Sex: Female
  Weight: 59 kg

DRUGS (5)
  1. GOCOVRI [Suspect]
     Active Substance: AMANTADINE
     Dosage: 205.5 MILLIGRAM, DAILY (68.5 MG, 1/DAY AT BEDTIME ALONG WITH 137 MG CAPSULE)
     Route: 048
     Dates: start: 20180504, end: 202002
  2. VITAMIN C [Concomitant]
     Active Substance: ASCORBIC ACID
     Indication: PRODUCT USED FOR UNKNOWN INDICATION
     Dosage: UNK
     Route: 065
  3. RYTARY [Suspect]
     Active Substance: CARBIDOPA\LEVODOPA
     Indication: PARKINSON^S DISEASE
     Dosage: UNK
     Route: 065
     Dates: start: 201909, end: 202002
  4. GOCOVRI [Suspect]
     Active Substance: AMANTADINE
     Indication: DYSKINESIA
     Dosage: 274 MILLIGRAM, BEDTIME
     Route: 048
     Dates: start: 20180504
  5. GOCOVRI [Suspect]
     Active Substance: AMANTADINE
     Dosage: 205.5 MILLIGRAM, DAILY (68.5 MG, 1/DAY AT BEDTIME ALONG WITH 137 MG CAPSULE)
     Route: 048
     Dates: start: 20180504, end: 202002

REACTIONS (5)
  - Feeling abnormal [Recovered/Resolved]
  - Tremor [Recovered/Resolved]
  - Malaise [Recovered/Resolved]
  - Hallucination, visual [Recovered/Resolved]
  - Asthenia [Recovered/Resolved]
